FAERS Safety Report 9016524 (Version 3)
Quarter: 2013Q3

REPORT INFORMATION
  Report Type: Report from Study
  Country: CA (occurrence: CA)
  Receive Date: 20130116
  Receipt Date: 20130702
  Transmission Date: 20140515
  Serious: Yes (Hospitalization)
  Sender: FDA-Public Use
  Company Number: CA-ELI_LILLY_AND_COMPANY-CA201301002481

PATIENT
  Age: 46 Year
  Sex: Male

DRUGS (13)
  1. TERIPARATIDE [Suspect]
     Indication: OSTEOPOROSIS
     Dosage: 20 UG, QD
     Route: 058
     Dates: start: 20110826, end: 20111101
  2. TERIPARATIDE [Suspect]
     Dosage: 20 UG, QD
     Route: 058
     Dates: start: 20120109, end: 20130210
  3. TERIPARATIDE [Suspect]
     Dosage: 20 UG, QD
     Route: 058
     Dates: start: 20130214
  4. HYDROMORPHONE [Concomitant]
  5. DOCUSATE SODIUM [Concomitant]
  6. IMOVANE [Concomitant]
  7. DETROL [Concomitant]
  8. LYRICA [Concomitant]
  9. DILAUDID [Concomitant]
  10. CALCIUM [Concomitant]
  11. MAGNESIUM [Concomitant]
  12. VITAMIN D [Concomitant]
  13. TRAZODONE [Concomitant]

REACTIONS (3)
  - Kidney infection [Not Recovered/Not Resolved]
  - Cystitis [Not Recovered/Not Resolved]
  - Muscle spasms [Recovered/Resolved]
